FAERS Safety Report 12592571 (Version 1)
Quarter: 2016Q3

REPORT INFORMATION
  Report Type: Report from Study
  Country: US (occurrence: US)
  Receive Date: 20160726
  Receipt Date: 20160726
  Transmission Date: 20161109
  Serious: Yes (Hospitalization)
  Sender: FDA-Public Use
  Company Number: US-JNJFOC-20160716717

PATIENT
  Age: 74 Year
  Sex: Female

DRUGS (1)
  1. IMBRUVICA [Suspect]
     Active Substance: IBRUTINIB
     Indication: MENINGIOMA MALIGNANT
     Route: 048
     Dates: start: 20160419, end: 20160714

REACTIONS (10)
  - Heart rate increased [Unknown]
  - Product use issue [Not Recovered/Not Resolved]
  - Muscular weakness [Unknown]
  - Synovial cyst [Unknown]
  - Off label use [Not Recovered/Not Resolved]
  - Dizziness [Unknown]
  - Blood glucose decreased [Unknown]
  - Infection [Unknown]
  - Skin lesion [Unknown]
  - Platelet count decreased [Unknown]

NARRATIVE: CASE EVENT DATE: 20160419
